FAERS Safety Report 8549478-2 (Version None)
Quarter: 2012Q3

REPORT INFORMATION
  Report Type: 
  Country: None (occurrence: None)
  Receive Date: 20120730
  Receipt Date: 20120723
  Transmission Date: 20120928
  Serious: Yes (Other)
  Sender: FDA-Public Use
  Company Number: US-BAYER-2012-068360

PATIENT
  Age: 28 Year
  Sex: Female

DRUGS (6)
  1. BETASERON [Suspect]
     Dosage: 8 MIU, QOD
     Route: 058
  2. VITAMIN D [Concomitant]
     Dosage: UNK
  3. ORAL CONTRACEPTIVE NOS [Concomitant]
  4. NAPROXEN SODIUM [Suspect]
     Indication: PREMEDICATION
     Dosage: UNK
  5. BETASERON [Suspect]
     Indication: MULTIPLE SCLEROSIS
     Dosage: UNK
     Route: 058
     Dates: start: 20110912, end: 20120402
  6. BETASERON [Suspect]
     Dosage: 4 MIU, QOD
     Route: 058
     Dates: start: 20120621

REACTIONS (4)
  - PEPTIC ULCER [None]
  - VOMITING [None]
  - ABDOMINAL PAIN [None]
  - GASTROENTERITIS ESCHERICHIA COLI [None]
